FAERS Safety Report 25660136 (Version 3)
Quarter: 2025Q3

REPORT INFORMATION
  Report Type: Spontaneous
  Country: EU (occurrence: EU)
  Receive Date: 20250808
  Receipt Date: 20250905
  Transmission Date: 20251021
  Serious: Yes (Other)
  Sender: PFIZER
  Company Number: EU-RICHTER-2025-GR-008763

PATIENT
  Age: 38 Year
  Sex: Female
  Weight: 61 kg

DRUGS (5)
  1. NAFARELIN ACETATE [Suspect]
     Active Substance: NAFARELIN ACETATE
     Indication: In vitro fertilisation
     Dates: start: 20250106, end: 20250202
  2. FOLLITROPIN ALFA [Suspect]
     Active Substance: FOLLITROPIN ALFA
     Indication: In vitro fertilisation
     Dosage: 300 IU, 1X/DAY
     Route: 058
     Dates: start: 20250122, end: 20250201
  3. PROGESTERONE [Suspect]
     Active Substance: PROGESTERONE
     Dosage: 400 MG, 2X/DAY (FREQ:.5 D)
     Dates: start: 20250207
  4. CHORIOGONADOTROPIN ALFA [Suspect]
     Active Substance: CHORIOGONADOTROPIN ALFA
     Indication: Oocyte harvest
     Dates: start: 20250202
  5. ACETAMINOPHEN [Concomitant]
     Active Substance: ACETAMINOPHEN
     Indication: Headache

REACTIONS (6)
  - Arrhythmia [Recovered/Resolved]
  - Placenta praevia [Unknown]
  - Superficial vein thrombosis [Unknown]
  - Blood creatinine decreased [Unknown]
  - Nausea [Recovered/Resolved]
  - Maternal exposure during pregnancy [Unknown]

NARRATIVE: CASE EVENT DATE: 20250101
